FAERS Safety Report 13682635 (Version 2)
Quarter: 2017Q2

REPORT INFORMATION
  Report Type: Spontaneous
  Country: US (occurrence: US)
  Receive Date: 20170623
  Receipt Date: 20170623
  Transmission Date: 20170830
  Serious: No
  Sender: FDA-Public Use
  Company Number: US-MALLINCKRODT-T201603317

PATIENT
  Sex: Female
  Weight: 55 kg

DRUGS (1)
  1. H.P. ACTHAR [Suspect]
     Active Substance: CORTICOTROPIN
     Indication: NEPHROTIC SYNDROME
     Dosage: 80 U/ML ; 0.5ML TWICE WEEKLY
     Route: 058

REACTIONS (1)
  - Injection site pain [Not Recovered/Not Resolved]
